FAERS Safety Report 16762515 (Version 1)
Quarter: 2019Q3

REPORT INFORMATION
  Report Type: Report from Study
  Country: CR (occurrence: CR)
  Receive Date: 20190831
  Receipt Date: 20190831
  Transmission Date: 20191005
  Serious: Yes (Other)
  Sender: FDA-Public Use
  Company Number: PHHY2019CR152759

PATIENT
  Age: 54 Year
  Sex: Female

DRUGS (1)
  1. SANDOSTATIN LAR DEPOT [Suspect]
     Active Substance: OCTREOTIDE ACETATE
     Indication: PRODUCT USED FOR UNKNOWN INDICATION
     Route: 065

REACTIONS (16)
  - Breast fibrosis [Unknown]
  - Hand deformity [Unknown]
  - Eye disorder [Unknown]
  - Arthropathy [Unknown]
  - Breast mass [Unknown]
  - Dysphonia [Unknown]
  - Peripheral swelling [Unknown]
  - Injection site mass [Unknown]
  - Depressed mood [Unknown]
  - Feeling abnormal [Unknown]
  - Breast inflammation [Unknown]
  - Blood glucose abnormal [Unknown]
  - Weight decreased [Unknown]
  - Hypotension [Unknown]
  - Nasopharyngitis [Unknown]
  - Abdominal pain upper [Unknown]
